FAERS Safety Report 7378019-0 (Version None)
Quarter: 2011Q1

REPORT INFORMATION
  Report Type: 
  Country: None (occurrence: None)
  Receive Date: 20110328
  Receipt Date: 20110323
  Transmission Date: 20110831
  Serious: Yes (Hospitalization)
  Sender: FDA-Public Use
  Company Number: US-ABBOTT-11P-163-0713922-00

PATIENT
  Age: 56 Year
  Sex: Female

DRUGS (10)
  1. METHOTREXATE [Concomitant]
     Indication: PSORIATIC ARTHROPATHY
  2. HUMIRA [Suspect]
     Indication: PSORIATIC ARTHROPATHY
     Route: 058
     Dates: start: 20101201
  3. XANAX [Concomitant]
     Indication: ANXIETY
     Route: 048
     Dates: start: 20110201
  4. XANAX [Concomitant]
     Dosage: 0.5 MG BID PRN
     Route: 048
     Dates: end: 20110222
  5. CELEXA [Concomitant]
     Indication: DEPRESSION
     Dosage: UNKNOWN STRENGTH
     Route: 048
  6. GLUCOVANCE [Concomitant]
     Indication: DIABETES MELLITUS
     Dosage: 5/500 IF BL OVER 200 - 2 IN 1 DAY
     Route: 048
  7. METHOTREXATE [Concomitant]
     Indication: RHEUMATOID ARTHRITIS
     Dosage: 0.8ML
  8. NEURONTIN [Concomitant]
     Indication: DIABETIC NEUROPATHY
     Route: 048
     Dates: start: 20110201
  9. BENAZEPRIL HYDROCHLORIDE [Concomitant]
     Indication: BLOOD PRESSURE INCREASED
     Route: 048
     Dates: end: 20110222
  10. NEURONTIN [Concomitant]
     Route: 048

REACTIONS (8)
  - DRUG EFFECT DECREASED [None]
  - PAIN IN EXTREMITY [None]
  - PALPITATIONS [None]
  - BLOOD PRESSURE INCREASED [None]
  - NAUSEA [None]
  - PANIC ATTACK [None]
  - HYPERHIDROSIS [None]
  - PARAESTHESIA [None]
